FAERS Safety Report 15756409 (Version 5)
Quarter: 2019Q3

REPORT INFORMATION
  Report Type: Report from Study
  Country: JP (occurrence: JP)
  Receive Date: 20181224
  Receipt Date: 20190828
  Transmission Date: 20191004
  Serious: Yes (Other)
  Sender: FDA-Public Use
  Company Number: JP-BRISTOL-MYERS SQUIBB COMPANY-BMS-2018-118941

PATIENT
  Age: 86 Year
  Sex: Female
  Weight: 48 kg

DRUGS (2)
  1. NIVOLUMAB [Suspect]
     Active Substance: NIVOLUMAB
     Indication: MALIGNANT MELANOMA
     Dosage: 80 MILLIGRAM/KILOGRAM, Q3WK
     Route: 041
     Dates: start: 20181003, end: 20181025
  2. IPILIMUMAB [Suspect]
     Active Substance: IPILIMUMAB
     Indication: MALIGNANT MELANOMA
     Dosage: 3 MILLIGRAM/KILOGRAM, Q3WK
     Route: 065
     Dates: start: 20181003, end: 20181025

REACTIONS (3)
  - Metastases to central nervous system [Unknown]
  - Pyrexia [Recovered/Resolved]
  - Hepatic rupture [Recovering/Resolving]
